FAERS Safety Report 15715537 (Version 1)
Quarter: 2018Q4

REPORT INFORMATION
  Report Type: Spontaneous
  Country: DK (occurrence: DK)
  Receive Date: 20181212
  Receipt Date: 20181212
  Transmission Date: 20190205
  Serious: Yes (Hospitalization)
  Sender: FDA-Public Use
  Company Number: DK-MYLANLABS-2018M1090340

PATIENT
  Age: 73 Year
  Sex: Female

DRUGS (1)
  1. SALBUTAMOL [Suspect]
     Active Substance: ALBUTEROL
     Indication: ASTHMA
     Dosage: }5 TIMES INHALATIONS DAILY
     Route: 050

REACTIONS (2)
  - Stress cardiomyopathy [Recovered/Resolved]
  - Paradoxical drug reaction [Recovered/Resolved]
